FAERS Safety Report 4282862-4 (Version None)
Quarter: 2004Q1

REPORT INFORMATION
  Report Type: 
  Country: None (occurrence: None)
  Receive Date: 20040130
  Receipt Date: 20030722
  Transmission Date: 20041129
  Serious: No
  Sender: FDA-Public Use
  Company Number: US-BRISTOL-MYERS SQUIBB COMPANY-12333092

PATIENT
  Age: 54 Year
  Sex: Female
  Weight: 68 kg

DRUGS (5)
  1. SERZONE [Suspect]
     Indication: DEPRESSION
     Dosage: 50-400MG DAILY. BEGAN IN ^2000 OR 2001^, INCREASING DOSE GRADUALLY UP TO 400MG DAILY.
     Route: 048
     Dates: end: 20030630
  2. LEVOXYL [Concomitant]
  3. DETROL [Concomitant]
  4. ORTHO-PREFEST [Concomitant]
     Indication: HORMONE REPLACEMENT THERAPY
  5. ACETAMINOPHEN [Concomitant]
     Dosage: ^EYE DROPS^
     Route: 031

REACTIONS (1)
  - HYPOTHYROIDISM [None]
